FAERS Safety Report 6743382-8 (Version None)
Quarter: 2010Q2

REPORT INFORMATION
  Report Type: 
  Country: None (occurrence: None)
  Receive Date: 20100527
  Receipt Date: 20100507
  Transmission Date: 20101027
  Serious: Yes (Hospitalization)
  Sender: FDA-Public Use
  Company Number: US-JNJFOC-20100503353

PATIENT
  Age: 8 Month
  Sex: Female
  Weight: 8.16 kg

DRUGS (2)
  1. CONCENTRATED TYLENOL INFANT DROPS [Suspect]
     Indication: TEETHING
     Dosage: EVERY 4 HOURS
     Route: 048
  2. CONCENTRATED TYLENOL INFANT DROPS [Suspect]
     Indication: NASOPHARYNGITIS
     Dosage: EVERY 4 HOURS
     Route: 048

REACTIONS (2)
  - PRODUCT QUALITY ISSUE [None]
  - VOMITING [None]
